FAERS Safety Report 9984628 (Version 1)
Quarter: 2014Q1

REPORT INFORMATION
  Report Type: Spontaneous
  Country: US (occurrence: US)
  Receive Date: 20140307
  Receipt Date: 20140307
  Transmission Date: 20141002
  Serious: No
  Sender: FDA-Public Use
  Company Number: US-GLAXOSMITHKLINE-A1052714A

PATIENT
  Age: 59 Year
  Sex: Male

DRUGS (4)
  1. BREO ELLIPTA [Suspect]
     Indication: CHRONIC OBSTRUCTIVE PULMONARY DISEASE
     Dosage: 1PUFF PER DAY
     Route: 055
     Dates: start: 201311
  2. INSULIN [Concomitant]
  3. UNSPECIFIED MEDICATION [Concomitant]
     Indication: RENAL DISORDER
  4. UNSPECIFIED HYPOTHYROID MEDICATION [Concomitant]

REACTIONS (1)
  - Musculoskeletal chest pain [Not Recovered/Not Resolved]
